FAERS Safety Report 10100530 (Version 1)
Quarter: 2014Q2

REPORT INFORMATION
  Report Type: Spontaneous
  Country: US (occurrence: US)
  Receive Date: 20140423
  Receipt Date: 20140423
  Transmission Date: 20141212
  Serious: Yes (Other)
  Sender: FDA-Public Use
  Company Number: US-GLAXOSMITHKLINE-A1070327A

PATIENT
  Age: 28 Year
  Sex: Male

DRUGS (3)
  1. POTIGA [Suspect]
     Indication: PRODUCT USED FOR UNKNOWN INDICATION
     Route: 065
  2. FELBAMATE [Suspect]
     Indication: PRODUCT USED FOR UNKNOWN INDICATION
     Route: 065
  3. FELBATOL [Concomitant]

REACTIONS (2)
  - Drug withdrawal convulsions [Unknown]
  - Convulsion [Unknown]
